FAERS Safety Report 23265589 (Version 2)
Quarter: 2023Q4

REPORT INFORMATION
  Report Type: Report from Study
  Country: US (occurrence: US)
  Receive Date: 20231206
  Receipt Date: 20231208
  Transmission Date: 20240110
  Serious: Yes (Other)
  Sender: FDA-Public Use
  Company Number: US-drreddys-CLI/USA/23/0186889

PATIENT
  Age: 21 Year
  Sex: Female

DRUGS (1)
  1. ZENATANE [Suspect]
     Active Substance: ISOTRETINOIN
     Indication: Product used for unknown indication
     Dosage: 20MG ,DRL BOX OF 30  (3 X 10)
     Dates: start: 20231011, end: 20231111

REACTIONS (1)
  - Exposure during pregnancy [Unknown]
